FAERS Safety Report 4934052-7 (Version None)
Quarter: 2006Q1

REPORT INFORMATION
  Report Type: 
  Country: None (occurrence: None)
  Receive Date: 20060303
  Receipt Date: 20060221
  Transmission Date: 20060701
  Serious: Yes (Hospitalization, Other)
  Sender: FDA-Public Use
  Company Number: 2006026202

PATIENT
  Age: 73 Year
  Sex: Male
  Weight: 84.369 kg

DRUGS (3)
  1. DILANTIN [Suspect]
     Indication: CEREBROVASCULAR ACCIDENT PROPHYLAXIS
     Dosage: UNK (100 MG, UNKNOWN), UNKNOWN
     Route: 065
  2. PHENYTOIN SODIUM CAP [Suspect]
     Indication: CEREBROVASCULAR ACCIDENT PROPHYLAXIS
     Dosage: 100 MG (100 MG, 1 IN 1 D), UNKNOWN
     Route: 065
  3. ASPIRIN [Concomitant]

REACTIONS (2)
  - ASTHENIA [None]
  - MYOCARDIAL INFARCTION [None]
